FAERS Safety Report 10672322 (Version 1)
Quarter: 2014Q4

REPORT INFORMATION
  Report Type: Spontaneous
  Country: CH (occurrence: CH)
  Receive Date: 20141223
  Receipt Date: 20141223
  Transmission Date: 20150529
  Serious: Yes (Hospitalization)
  Sender: FDA-Public Use
  Company Number: CH-BAYER-2014-186561

PATIENT
  Age: 80 Year
  Sex: Female

DRUGS (7)
  1. ASPIRIN CARDIO [Suspect]
     Active Substance: ASPIRIN
     Dosage: 100 MG, QD
     Route: 048
     Dates: end: 201411
  2. ZYLORIC [Concomitant]
     Active Substance: ALLOPURINOL
  3. COLCHICIN [Concomitant]
     Active Substance: COLCHICINE
  4. XARELTO [Suspect]
     Active Substance: RIVAROXABAN
     Dosage: 10 MG, QD
     Route: 048
     Dates: start: 201407, end: 201411
  5. INSULIN [Concomitant]
     Active Substance: INSULIN NOS
     Route: 058
  6. PANTOZOL [Concomitant]
     Active Substance: PANTOPRAZOLE SODIUM
     Dosage: UNK
  7. LASIX [Concomitant]
     Active Substance: FUROSEMIDE

REACTIONS (3)
  - Haemorrhagic anaemia [Recovering/Resolving]
  - Fall [Recovered/Resolved]
  - Melaena [Recovered/Resolved]

NARRATIVE: CASE EVENT DATE: 201411
